FAERS Safety Report 24895010 (Version 1)
Quarter: 2025Q1

REPORT INFORMATION
  Report Type: Spontaneous
  Country: US (occurrence: None)
  Receive Date: 20250128
  Receipt Date: 20250128
  Transmission Date: 20250409
  Serious: Yes (Other)
  Sender: FDA-CTU
  Company Number: None

PATIENT
  Age: 28 Year
  Sex: Female
  Weight: 50.85 kg

DRUGS (7)
  1. EMGALITY [Suspect]
     Active Substance: GALCANEZUMAB-GNLM
     Indication: Migraine
     Dosage: OTHER QUANTITY : 1 INJECTION(S);?OTHER FREQUENCY : ONCE PER MONTH;?
     Route: 058
     Dates: start: 20250118
  2. LAMOTRIGINE [Concomitant]
     Active Substance: LAMOTRIGINE
  3. VIBEGRON [Concomitant]
     Active Substance: VIBEGRON
  4. FIORICET [Concomitant]
     Active Substance: ACETAMINOPHEN\BUTALBITAL\CAFFEINE
  5. MAGNESIUM GLYCINATE [Concomitant]
     Active Substance: MAGNESIUM GLYCINATE
  6. VITAMIN D3 [Concomitant]
     Active Substance: CHOLECALCIFEROL
  7. Ferrous gluconate (iron) [Concomitant]

REACTIONS (4)
  - Akathisia [None]
  - Burning sensation [None]
  - Burning sensation [None]
  - Drug ineffective [None]

NARRATIVE: CASE EVENT DATE: 20250118
